FAERS Safety Report 5507856-X (Version None)
Quarter: 2007Q4

REPORT INFORMATION
  Report Type: 
  Country: None (occurrence: None)
  Receive Date: 20071106
  Receipt Date: 20071030
  Transmission Date: 20080405
  Serious: Yes (Other)
  Sender: FDA-Public Use
  Company Number: PHBS2007BR17938

PATIENT
  Age: 82 Year
  Sex: Female
  Weight: 37 kg

DRUGS (2)
  1. BROMAZEPAM [Concomitant]
     Dosage: 1.5 MG, QHS
     Route: 048
  2. FORASEQ [Suspect]
     Indication: EMPHYSEMA
     Dosage: UNK, BID
     Dates: start: 20060501

REACTIONS (5)
  - FATIGUE [None]
  - MACULAR OEDEMA [None]
  - NERVOUSNESS [None]
  - VISUAL ACUITY REDUCED [None]
  - WEIGHT DECREASED [None]
